FAERS Safety Report 9776121 (Version 2)
Quarter: 2013Q4

REPORT INFORMATION
  Report Type: Report from Study
  Country: RU (occurrence: RU)
  Receive Date: 20131220
  Receipt Date: 20131220
  Transmission Date: 20140711
  Serious: Yes (Other)
  Sender: FDA-Public Use
  Company Number: RU-MERCK-1211RUS007858

PATIENT
  Age: 32 Year
  Sex: Female
  Weight: 47 kg

DRUGS (11)
  1. BOCEPREVIR [Suspect]
     Indication: CHRONIC HEPATITIS C
     Dosage: 800 MG, TID
     Route: 048
     Dates: start: 20120619
  2. PEGINTRON [Suspect]
     Indication: CHRONIC HEPATITIS C
     Dosage: 80 MICROGRAM, QW, REDIPEN
     Route: 058
     Dates: start: 20120522, end: 20121106
  3. PEGINTRON [Suspect]
     Dosage: DOSE MODIFIED,
     Route: 058
     Dates: start: 20120619
  4. PEGINTRON [Suspect]
     Dosage: 56 MCG, QW, REDIPEN
     Route: 058
     Dates: start: 20120724
  5. PEGINTRON [Suspect]
     Dosage: 45 MICROGRAM, QW
     Route: 058
     Dates: start: 20120807
  6. PEGINTRON [Suspect]
     Dosage: 64 MCG, QW, REDIPEN
     Route: 058
     Dates: start: 20120814
  7. PEGINTRON [Suspect]
     Dosage: 45 MICROGRAM, QW, REDIPEN
     Route: 058
     Dates: start: 20120904
  8. PEGINTRON [Suspect]
     Dosage: 50 MCG, QW, REDIPEN
     Route: 058
     Dates: start: 20120918
  9. PEGINTRON [Suspect]
     Dosage: 64 MCG, QW, REDIPEN
     Route: 058
     Dates: start: 20121002
  10. PEGINTRON [Suspect]
     Dosage: 30 MCG, QW, REDIPEN
     Route: 058
     Dates: start: 20121115
  11. RIBAVIRIN [Suspect]
     Indication: CHRONIC HEPATITIS C
     Dosage: 400 MG, BID
     Route: 048
     Dates: start: 20120522

REACTIONS (1)
  - Neutropenia [Recovered/Resolved]
